FAERS Safety Report 20134235 (Version 1)
Quarter: 2021Q4

REPORT INFORMATION
  Report Type: Report from Study
  Country: AR (occurrence: AR)
  Receive Date: 20211201
  Receipt Date: 20211201
  Transmission Date: 20220303
  Serious: Yes (Death, Hospitalization, Other)
  Sender: FDA-Public Use
  Company Number: AR-NOVARTISPH-NVSC2019AR074808

PATIENT
  Age: 83 Year
  Sex: Female

DRUGS (11)
  1. ELTROMBOPAG OLAMINE [Suspect]
     Active Substance: ELTROMBOPAG OLAMINE
     Indication: Immune thrombocytopenia
     Dosage: 50 MG, QD (2X 25 MG)
     Route: 048
     Dates: start: 20191128
  2. ELTROMBOPAG OLAMINE [Suspect]
     Active Substance: ELTROMBOPAG OLAMINE
     Dosage: 75 MG, QD
     Route: 048
     Dates: start: 20191128
  3. ELTROMBOPAG OLAMINE [Suspect]
     Active Substance: ELTROMBOPAG OLAMINE
     Dosage: 75 MG, QD
     Route: 048
     Dates: start: 20200726
  4. ELTROMBOPAG OLAMINE [Suspect]
     Active Substance: ELTROMBOPAG OLAMINE
     Dosage: 50 MG, QD
     Route: 048
  5. ELTROMBOPAG OLAMINE [Suspect]
     Active Substance: ELTROMBOPAG OLAMINE
     Dosage: 50 MG, QD
     Route: 048
  6. VALSARTAN [Concomitant]
     Active Substance: VALSARTAN
     Indication: Hypertension
     Dosage: UNK
     Route: 065
  7. LERCANIDIPINE HYDROCHLORIDE [Concomitant]
     Active Substance: LERCANIDIPINE HYDROCHLORIDE
     Indication: Hypertension
     Dosage: UNK
     Route: 065
  8. OMEPRAZOLE [Concomitant]
     Active Substance: OMEPRAZOLE
     Indication: Product used for unknown indication
     Dosage: UNK
     Route: 065
  9. TAFIROL [Concomitant]
     Indication: Product used for unknown indication
     Dosage: UNK
     Route: 065
  10. ALPLAX NET [Concomitant]
     Indication: Product used for unknown indication
     Dosage: UNK
     Route: 065
  11. ALPRAZOLAM [Concomitant]
     Active Substance: ALPRAZOLAM
     Indication: Sleep disorder
     Dosage: 1 MG
     Route: 065

REACTIONS (12)
  - Cardio-respiratory arrest [Fatal]
  - Neoplasm [Unknown]
  - Arrhythmia [Unknown]
  - Platelet count decreased [Unknown]
  - Herpes zoster [Unknown]
  - Decreased immune responsiveness [Recovered/Resolved]
  - Neuralgia [Unknown]
  - Fall [Unknown]
  - Pain [Unknown]
  - Pain in extremity [Unknown]
  - Rash [Recovered/Resolved]
  - Incorrect dose administered [Unknown]

NARRATIVE: CASE EVENT DATE: 20191208
